FAERS Safety Report 6467200-0 (Version None)
Quarter: 2009Q4

REPORT INFORMATION
  Report Type: 
  Country: None (occurrence: None)
  Receive Date: 20091202
  Receipt Date: 20091118
  Transmission Date: 20100525
  Serious: No
  Sender: FDA-Public Use
  Company Number: US-B.I. PHARMACEUTICALS,INC./RIDGEFIELD-2009-BP-12300BP

PATIENT
  Sex: Male

DRUGS (14)
  1. CATAPRES-TTS-1 [Suspect]
     Indication: BLOOD PRESSURE MANAGEMENT
     Dosage: 0.3 MG
     Route: 061
     Dates: start: 20090601, end: 20091019
  2. CATAPRES-TTS-1 [Suspect]
     Indication: BLOOD PRESSURE FLUCTUATION
  3. PRIMIDONE [Concomitant]
     Indication: ESSENTIAL TREMOR
  4. LASIX [Concomitant]
     Indication: HYPERTENSION
  5. PREVACID [Concomitant]
     Indication: GASTROOESOPHAGEAL REFLUX DISEASE
  6. KLOR-CON [Concomitant]
  7. CARDIA XT [Concomitant]
     Indication: HYPERTENSION
  8. ATENOLOL [Concomitant]
     Indication: HYPERTENSION
  9. ENALAPRIL MALEATE [Concomitant]
     Indication: HYPERTENSION
  10. IMIPRAMINE [Concomitant]
     Indication: BLADDER DISORDER
  11. ALLERGY [Concomitant]
     Indication: HYPERSENSITIVITY
  12. CARDIZEM [Concomitant]
  13. FLOMAX [Concomitant]
  14. SINGULAIR [Concomitant]

REACTIONS (6)
  - APPLICATION SITE ERYTHEMA [None]
  - APPLICATION SITE IRRITATION [None]
  - APPLICATION SITE PRURITUS [None]
  - APPLICATION SITE REACTION [None]
  - APPLICATION SITE SCAB [None]
  - DERMATITIS [None]
